FAERS Safety Report 8458632-X (Version None)
Quarter: 2012Q2

REPORT INFORMATION
  Report Type: 
  Country: None (occurrence: None)
  Receive Date: 20120622
  Receipt Date: 20120613
  Transmission Date: 20120825
  Serious: Yes (Other)
  Sender: FDA-Public Use
  Company Number: US-JNJFOC-20120606992

PATIENT
  Sex: Female
  Weight: 87.54 kg

DRUGS (8)
  1. ASPIRIN [Concomitant]
     Indication: CORONARY ARTERY DISEASE
     Route: 048
  2. NOVOLOG [Concomitant]
     Indication: DIABETES MELLITUS
     Route: 058
     Dates: start: 20040101
  3. CRESTOR [Concomitant]
     Indication: BLOOD CHOLESTEROL
     Route: 048
  4. ZETIA [Suspect]
     Indication: BLOOD CHOLESTEROL INCREASED
     Route: 048
     Dates: start: 20120605, end: 20120612
  5. RANEXA [Concomitant]
     Indication: CORONARY ARTERY DISEASE
     Route: 048
     Dates: start: 20040101
  6. CALCIUM WITH VITAMIN D [Concomitant]
     Indication: NUTRITIONAL SUPPORT
     Route: 048
     Dates: start: 20110101
  7. REMICADE [Suspect]
     Indication: PSORIASIS
     Route: 042
  8. REMICADE [Suspect]
     Indication: PSORIATIC ARTHROPATHY
     Route: 042

REACTIONS (13)
  - IMPAIRED GASTRIC EMPTYING [None]
  - CORONARY ARTERY OCCLUSION [None]
  - FEELING HOT [None]
  - DIZZINESS [None]
  - NAUSEA [None]
  - VITAMIN D DECREASED [None]
  - INSOMNIA [None]
  - BLOOD CHOLESTEROL ABNORMAL [None]
  - VOMITING [None]
  - HEADACHE [None]
  - DEPRESSION [None]
  - QUALITY OF LIFE DECREASED [None]
  - VISION BLURRED [None]
